FAERS Safety Report 7805433 (Version 7)
Quarter: 2012Q4

REPORT INFORMATION
  Report Type: 
  Country: JP (occurrence: JP)
  Receive Date: 20110209
  Receipt Date: 20121227
  Transmission Date: 20130627
  Serious: Yes (Other)
  Sender: FDA-Public Use
  Company Number: JP-JNJFOC-20100900112

PATIENT
  Age: 48 Year
  Sex: Male
  Weight: 65 kg

DRUGS (10)
  1. REMICADE [Suspect]
     Indication: CROHN^S DISEASE
     Dosage: 4 doses administered
     Route: 042
  2. REMICADE [Suspect]
     Indication: CROHN^S DISEASE
     Dosage: 4 doses administered
     Route: 042
  3. REMICADE [Suspect]
     Indication: CROHN^S DISEASE
     Dosage: 4 doses administered
     Route: 042
  4. REMICADE [Suspect]
     Indication: CROHN^S DISEASE
     Dosage: 4 doses administered
     Route: 042
     Dates: start: 20091124
  5. REMICADE [Suspect]
     Indication: CROHN^S DISEASE
     Dosage: 4 doses administered
     Route: 042
     Dates: start: 20100511
  6. REMICADE [Suspect]
     Indication: CROHN^S DISEASE
     Dosage: 4 doses administered
     Route: 042
     Dates: start: 20100706
  7. REMICADE [Suspect]
     Indication: CROHN^S DISEASE
     Dosage: 4 doses administered
     Route: 042
  8. REMICADE [Suspect]
     Indication: CROHN^S DISEASE
     Route: 042
     Dates: start: 20090818
  9. PENTASA [Concomitant]
     Indication: CROHN^S DISEASE
     Route: 048
     Dates: start: 20090812
  10. DEPAS [Concomitant]
     Indication: ANXIETY
     Route: 048

REACTIONS (2)
  - Lupus-like syndrome [Recovered/Resolved]
  - Drug specific antibody present [Unknown]
